FAERS Safety Report 9277227 (Version 1)
Quarter: 2013Q2

REPORT INFORMATION
  Report Type: Spontaneous
  Country: US (occurrence: US)
  Receive Date: 20130508
  Receipt Date: 20130508
  Transmission Date: 20140414
  Serious: Yes (Other)
  Sender: FDA-Public Use
  Company Number: US-AMGEN-USASP2013030507

PATIENT
  Sex: Male

DRUGS (3)
  1. XGEVA [Suspect]
     Indication: PRODUCT USED FOR UNKNOWN INDICATION
     Route: 042
  2. ATROPINE [Concomitant]
  3. IRONOTEL [Concomitant]

REACTIONS (2)
  - Hypercalcaemia of malignancy [Unknown]
  - Incorrect route of drug administration [Unknown]
